FAERS Safety Report 8880452 (Version 1)
Quarter: 2012Q4

REPORT INFORMATION
  Report Type: 
  Country: US (occurrence: US)
  Receive Date: 20121031
  Receipt Date: 20121031
  Transmission Date: 20130627
  Serious: No
  Sender: FDA-Public Use
  Company Number: US-009507513-1210USA011801

PATIENT
  Age: 59 Year
  Sex: Female

DRUGS (1)
  1. ISENTRESS [Suspect]
     Indication: HIV INFECTION
     Dosage: two halves of the tablet, bid
     Route: 048
     Dates: start: 201001

REACTIONS (2)
  - Blood HIV RNA [Unknown]
  - Wrong technique in drug usage process [Unknown]
